FAERS Safety Report 11313603 (Version 1)
Quarter: 2015Q3

REPORT INFORMATION
  Report Type: Other
  Country: PL (occurrence: PL)
  Receive Date: 20150727
  Receipt Date: 20150727
  Transmission Date: 20151125
  Serious: Yes (Hospitalization, Other)
  Sender: FDA-Public Use
  Company Number: PL-ACTELION-A-CH2015-121142

PATIENT
  Age: 6 Year
  Sex: Female

DRUGS (6)
  1. FLOLAN [Concomitant]
     Active Substance: EPOPROSTENOL SODIUM
     Route: 042
  2. SILDENAFIL. [Concomitant]
     Active Substance: SILDENAFIL
  3. TRACLEER [Suspect]
     Active Substance: BOSENTAN
     Indication: PULMONARY ARTERIAL HYPERTENSION
     Dosage: 62 MG, BID
     Route: 048
  4. CAPTOPRIL. [Concomitant]
     Active Substance: CAPTOPRIL
  5. L-ARGININE [Concomitant]
     Active Substance: ARGININE
  6. TRACLEER [Suspect]
     Active Substance: BOSENTAN
     Dosage: 31 MG, BID
     Route: 048

REACTIONS (6)
  - Pleural effusion [Recovered/Resolved]
  - Systemic-pulmonary artery shunt [Recovered/Resolved]
  - Drug ineffective [Unknown]
  - Respiratory tract infection [Recovered/Resolved]
  - Cardiovascular insufficiency [Recovered/Resolved]
  - Thrombocytopenia [Not Recovered/Not Resolved]

NARRATIVE: CASE EVENT DATE: 201212
